FAERS Safety Report 15471009 (Version 1)
Quarter: 2018Q4

REPORT INFORMATION
  Report Type: Spontaneous
  Country: DE (occurrence: DE)
  Receive Date: 20181006
  Receipt Date: 20181006
  Transmission Date: 20190205
  Serious: Yes (Disabling)
  Sender: FDA-Public Use
  Company Number: DE-AUROBINDO-AUR-APL-2018-048905

PATIENT
  Age: 22 Year
  Sex: Male

DRUGS (1)
  1. FINASTERIDE. [Suspect]
     Active Substance: FINASTERIDE
     Indication: PRODUCT USED FOR UNKNOWN INDICATION
     Dosage: UNK
     Route: 048
     Dates: end: 2018

REACTIONS (7)
  - Libido decreased [Unknown]
  - Hair growth abnormal [Unknown]
  - Penile size reduced [Unknown]
  - Body fat disorder [Unknown]
  - Skin burning sensation [Unknown]
  - Genital burning sensation [Unknown]
  - Erectile dysfunction [Unknown]

NARRATIVE: CASE EVENT DATE: 2014
